FAERS Safety Report 11227695 (Version 1)
Quarter: 2015Q2

REPORT INFORMATION
  Report Type: Spontaneous
  Country: FR (occurrence: FR)
  Receive Date: 20150630
  Receipt Date: 20150630
  Transmission Date: 20150821
  Serious: Yes (Hospitalization)
  Sender: FDA-Public Use
  Company Number: FR-SA-2015SA092796

PATIENT
  Sex: Female

DRUGS (6)
  1. PREVISCAN [Suspect]
     Active Substance: FLUINDIONE
     Dosage: FORM:COMPRIM?  S?CABLE
     Route: 048
     Dates: start: 2000
  2. PREVISCAN [Suspect]
     Active Substance: FLUINDIONE
     Route: 048
     Dates: end: 20150602
  3. TEMERIT [Suspect]
     Active Substance: NEBIVOLOL
     Dosage: FORM:QUADRISECTED TABLET
     Route: 048
  4. LEVOTHYROX [Suspect]
     Active Substance: LEVOTHYROXINE
     Dosage: FORM: COMPRIM?  S?CABLE(SCORED TABLET)
     Route: 048
  5. AMIODARONE [Suspect]
     Active Substance: AMIODARONE
     Route: 048
  6. LASILIX [Suspect]
     Active Substance: FUROSEMIDE
     Route: 065

REACTIONS (1)
  - Subdural haematoma [Unknown]

NARRATIVE: CASE EVENT DATE: 20150602
